FAERS Safety Report 19176165 (Version 5)
Quarter: 2022Q4

REPORT INFORMATION
  Report Type: Report from Study
  Country: CA (occurrence: CA)
  Receive Date: 20210424
  Receipt Date: 20221208
  Transmission Date: 20230112
  Serious: Yes (Other)
  Sender: FDA-Public Use
  Company Number: NVSC2021CA042990

PATIENT
  Age: 67 Year
  Sex: Female

DRUGS (1)
  1. MAYZENT [Suspect]
     Active Substance: SIPONIMOD
     Indication: Secondary progressive multiple sclerosis
     Dosage: UNK
     Route: 048
     Dates: start: 20210217

REACTIONS (14)
  - Cardiac flutter [Unknown]
  - Multiple sclerosis [Unknown]
  - Gait disturbance [Unknown]
  - Grip strength decreased [Unknown]
  - Balance disorder [Unknown]
  - Oedema peripheral [Unknown]
  - Peripheral swelling [Unknown]
  - Blood pressure fluctuation [Unknown]
  - Muscle spasms [Unknown]
  - Heart rate decreased [Unknown]
  - Nausea [Unknown]
  - Dizziness [Unknown]
  - Blood pressure increased [Unknown]
  - Drug ineffective [Unknown]

NARRATIVE: CASE EVENT DATE: 20210201
